FAERS Safety Report 10082296 (Version 1)
Quarter: 2014Q2

REPORT INFORMATION
  Report Type: Spontaneous
  Country: US (occurrence: None)
  Receive Date: 20140414
  Receipt Date: 20140414
  Transmission Date: 20141212
  Serious: No
  Sender: FDA-Public Use
  Company Number: None

PATIENT
  Age: 51 Year
  Sex: Female
  Weight: 56.7 kg

DRUGS (3)
  1. DULOXETINE [Suspect]
     Indication: BACK PAIN
     Dosage: 1 PILL ONCE DAILY TAKEN BY MOUTH
     Route: 048
     Dates: start: 20140324, end: 20140402
  2. DULOXETINE [Suspect]
     Indication: NEUROPATHY PERIPHERAL
     Dosage: 1 PILL ONCE DAILY TAKEN BY MOUTH
     Route: 048
     Dates: start: 20140324, end: 20140402
  3. DULOXETINE [Suspect]
     Indication: FIBROMYALGIA
     Dosage: 1 PILL ONCE DAILY TAKEN BY MOUTH
     Route: 048
     Dates: start: 20140324, end: 20140402

REACTIONS (6)
  - Product substitution issue [None]
  - Migraine [None]
  - Neuropathy peripheral [None]
  - Fibromyalgia [None]
  - Disease recurrence [None]
  - Mobility decreased [None]
